FAERS Safety Report 16583855 (Version 1)
Quarter: 2019Q3

REPORT INFORMATION
  Report Type: Spontaneous
  Country: GR (occurrence: GR)
  Receive Date: 20190717
  Receipt Date: 20190717
  Transmission Date: 20191004
  Serious: Yes (Other)
  Sender: FDA-Public Use
  Company Number: GR-AMGEN-GRCSP2019112612

PATIENT
  Age: 78 Year

DRUGS (9)
  1. 5-FU [FLUOROURACIL] [Concomitant]
     Active Substance: FLUOROURACIL
     Indication: RECTAL CANCER METASTATIC
     Dosage: UNK UNK, CYCLICAL
     Dates: start: 201603, end: 2017
  2. CAPECITABINE. [Concomitant]
     Active Substance: CAPECITABINE
     Indication: RECTAL CANCER METASTATIC
     Dosage: UNK UNK, CYCLICAL
     Dates: start: 2017
  3. OXALIPLATIN. [Concomitant]
     Active Substance: OXALIPLATIN
     Indication: RECTAL CANCER METASTATIC
     Dosage: UNK UNK, CYCLICAL
     Dates: start: 201603, end: 201606
  4. FOLINIC ACID [Concomitant]
     Active Substance: LEUCOVORIN
     Indication: RECTAL CANCER METASTATIC
     Dosage: UNK UNK, CYCLICAL
     Dates: start: 201603, end: 2017
  5. ZALTRAP [Suspect]
     Active Substance: ZIV-AFLIBERCEPT
     Indication: RECTAL CANCER METASTATIC
     Dosage: UNK UNK, CYCLICAL
     Route: 065
     Dates: start: 201606, end: 2016
  6. ZALTRAP [Suspect]
     Active Substance: ZIV-AFLIBERCEPT
     Dosage: UNK UNK, CYCLICAL (SEVERAL DELAYS AND DOSE REDUCTIONS)
     Route: 065
     Dates: start: 201610, end: 2017
  7. IRINOTECAN [Concomitant]
     Active Substance: IRINOTECAN
     Indication: RECTAL CANCER METASTATIC
     Dosage: UNK UNK, CYCLICAL
     Dates: start: 201606
  8. PANITUMUMAB [Suspect]
     Active Substance: PANITUMUMAB
     Indication: RECTAL CANCER METASTATIC
     Dosage: UNK UNK, CYCLICAL
     Route: 065
     Dates: start: 201603, end: 201606
  9. PANITUMUMAB [Suspect]
     Active Substance: PANITUMUMAB
     Dosage: UNK UNK, CYCLICAL
     Route: 065
     Dates: start: 2017, end: 201801

REACTIONS (4)
  - Nephrotic syndrome [Recovering/Resolving]
  - Bone marrow toxicity [Unknown]
  - Liver injury [Recovering/Resolving]
  - Rectal cancer metastatic [Recovering/Resolving]

NARRATIVE: CASE EVENT DATE: 2016
